FAERS Safety Report 24781412 (Version 1)
Quarter: 2024Q4

REPORT INFORMATION
  Report Type: Spontaneous
  Country: FR (occurrence: FR)
  Receive Date: 20241227
  Receipt Date: 20241227
  Transmission Date: 20250114
  Serious: Yes (Disabling)
  Sender: CHEPLAPHARM
  Company Number: FR-CHEPLA-2024015212

PATIENT
  Age: 49 Year
  Sex: Male

DRUGS (2)
  1. HYDROXYUREA [Suspect]
     Active Substance: HYDROXYUREA
     Indication: Essential thrombocythaemia
     Dosage: DOSAGE OF 17 CAPSULES PER WEEK (2 TO 3 CAPSULES PER DAY)
     Route: 048
     Dates: start: 202203, end: 202305
  2. PEGASYS [Concomitant]
     Active Substance: PEGINTERFERON ALFA-2A
     Indication: Essential thrombocythaemia
     Dosage: WEEKLY INJECTIONS OF ALTERNATING DOSES OF 90 OR 135?G (DEPENDING ON AVAILABILITY OF TREATMENT)
     Dates: start: 202305

REACTIONS (3)
  - Aphthous ulcer [Recovered/Resolved]
  - Alopecia [Unknown]
  - Drug intolerance [Unknown]

NARRATIVE: CASE EVENT DATE: 20220901
